FAERS Safety Report 16156946 (Version 3)
Quarter: 2024Q1

REPORT INFORMATION
  Report Type: Other
  Country: DE (occurrence: None)
  Receive Date: 20190404
  Receipt Date: 20240108
  Transmission Date: 20240410
  Serious: Yes (Other)
  Sender: FDA-Public Use
  Company Number: DE-ROCHE-2185103

PATIENT
  Age: 44 Year
  Sex: Female

DRUGS (6)
  1. OCREVUS [Suspect]
     Active Substance: OCRELIZUMAB
     Indication: Relapsing-remitting multiple sclerosis
     Dosage: 189 DAYS
     Route: 042
     Dates: start: 20180419
  2. OCREVUS [Suspect]
     Active Substance: OCRELIZUMAB
     Dosage: SUBSEQUENT DOSE OF OCRELIZUMAB: 11/FEB/2021, 19/AUG/2021
     Route: 042
     Dates: start: 20181122
  3. OCREVUS [Suspect]
     Active Substance: OCRELIZUMAB
     Route: 042
     Dates: start: 20210211
  4. OCREVUS [Suspect]
     Active Substance: OCRELIZUMAB
     Route: 042
     Dates: start: 20210819
  5. CANDESARTAN [Concomitant]
     Active Substance: CANDESARTAN
  6. BLACK COHOSH [Concomitant]
     Active Substance: BLACK COHOSH

REACTIONS (23)
  - Gastrointestinal inflammation [Recovered/Resolved]
  - Crohn^s disease [Not Recovered/Not Resolved]
  - Dermal cyst [Recovered/Resolved]
  - Heart rate increased [Recovered/Resolved]
  - Blood pressure increased [Recovered/Resolved]
  - Menstruation irregular [Recovered/Resolved]
  - Nasopharyngitis [Recovered/Resolved]
  - Back pain [Recovered/Resolved]
  - Body temperature increased [Recovered/Resolved]
  - Joint dislocation [Recovering/Resolving]
  - Neck pain [Recovered/Resolved]
  - Malpositioned teeth [Recovering/Resolving]
  - Dental operation [Recovering/Resolving]
  - Fall [Unknown]
  - Ligament sprain [Recovered/Resolved]
  - Fatigue [Not Recovered/Not Resolved]
  - Hypotension [Recovered/Resolved]
  - Gastritis [Recovered/Resolved]
  - Heart rate increased [Recovered/Resolved]
  - Neck pain [Recovered/Resolved]
  - COVID-19 [Recovered/Resolved]
  - Vulvovaginal mycotic infection [Recovered/Resolved]
  - Bronchitis [Recovered/Resolved]

NARRATIVE: CASE EVENT DATE: 20181020
